FAERS Safety Report 13088664 (Version 2)
Quarter: 2017Q1

REPORT INFORMATION
  Report Type: Spontaneous
  Country: US (occurrence: US)
  Receive Date: 20170105
  Receipt Date: 20170112
  Transmission Date: 20170428
  Serious: Yes (Disabling)
  Sender: FDA-Public Use
  Company Number: US-CELGENEUS-USA-2016128745

PATIENT
  Age: 66 Year
  Sex: Female

DRUGS (2)
  1. REVLIMID [Suspect]
     Active Substance: LENALIDOMIDE
     Indication: MONOCLONAL GAMMOPATHY
     Dosage: 15 MILLIGRAM
     Route: 048
     Dates: start: 20160722
  2. REVLIMID [Suspect]
     Active Substance: LENALIDOMIDE
     Indication: AMYLOIDOSIS
     Dosage: 15 MILLIGRAM
     Route: 048
     Dates: start: 201604

REACTIONS (2)
  - Lower limb fracture [Not Recovered/Not Resolved]
  - Transient ischaemic attack [Not Recovered/Not Resolved]

NARRATIVE: CASE EVENT DATE: 20161212
